FAERS Safety Report 5329554-8 (Version None)
Quarter: 2007Q1

REPORT INFORMATION
  Report Type: 
  Country: None (occurrence: None)
  Receive Date: 20070227
  Receipt Date: 20061027
  Transmission Date: 20070707
  Serious: Yes (Other)
  Sender: FDA-Public Use
  Company Number: 469417

PATIENT
  Age: 16 Year
  Sex: Female

DRUGS (1)
  1. ISOTRETINOIN [Suspect]
     Indication: DRUG USE FOR UNKNOWN INDICATION
     Dosage: 0.7 MG/KG/DAILY

REACTIONS (3)
  - BENIGN INTRACRANIAL HYPERTENSION [None]
  - CEREBRAL DISORDER [None]
  - PAPILLOEDEMA [None]
